FAERS Safety Report 6383268-4 (Version None)
Quarter: 2009Q3

REPORT INFORMATION
  Report Type: 
  Country: None (occurrence: None)
  Receive Date: 20090929
  Receipt Date: 20090907
  Transmission Date: 20100115
  Serious: Yes (Hospitalization)
  Sender: FDA-Public Use
  Company Number: 2009090033

PATIENT
  Age: 53 Year
  Sex: Male

DRUGS (8)
  1. TORSEMIDE [Suspect]
     Dosage: 10 MG (10 MG, 1 IN 1 D)
  2. SULFAMETHOXAZOLE AND TRIMETHOPRIM [Suspect]
     Indication: CELLULITIS
  3. CEFTRIAXON [Suspect]
     Indication: INFECTION
  4. VANCOMYCIN [Suspect]
     Indication: CELLULITIS
     Dosage: INTRAVENOUS (NOT OTHERWISE SPECIFIED)
     Route: 042
  5. METRONIDAZOLE [Suspect]
     Indication: CELLULITIS
  6. WARFARIN SODIUM [Concomitant]
  7. ASPIRIN [Concomitant]
  8. METOPROLOL (METOPROLOL) [Concomitant]

REACTIONS (13)
  - ALCOHOL USE [None]
  - ARTHRALGIA [None]
  - CELLULITIS [None]
  - CUTANEOUS VASCULITIS [None]
  - DIZZINESS [None]
  - HYPERSENSITIVITY [None]
  - LEUKOCYTOCLASTIC VASCULITIS [None]
  - NAUSEA [None]
  - OSTEOMYELITIS [None]
  - PETECHIAE [None]
  - PLANTAR ERYTHEMA [None]
  - SKIN ULCER [None]
  - VENOUS INSUFFICIENCY [None]
